FAERS Safety Report 7596991-0 (Version None)
Quarter: 2011Q3

REPORT INFORMATION
  Report Type: 
  Country: None (occurrence: None)
  Receive Date: 20110708
  Receipt Date: 20110705
  Transmission Date: 20111222
  Serious: Yes (Hospitalization)
  Sender: FDA-Public Use
  Company Number: DE-TEVA-276685GER

PATIENT
  Sex: Female

DRUGS (1)
  1. PRAVASTATIN [Suspect]
     Indication: HYPERCHOLESTEROLAEMIA
     Route: 048
     Dates: start: 20090101

REACTIONS (4)
  - VULVOVAGINAL MYCOTIC INFECTION [None]
  - VAGINAL INFECTION [None]
  - PRURITUS GENITAL [None]
  - VULVOVAGINAL DISCOMFORT [None]
